FAERS Safety Report 14577798 (Version 1)
Quarter: 2018Q1

REPORT INFORMATION
  Report Type: Spontaneous
  Country: US (occurrence: US)
  Receive Date: 20180227
  Receipt Date: 20180227
  Transmission Date: 20180509
  Serious: No
  Sender: FDA-Public Use
  Company Number: US-GLAXOSMITHKLINE-US2018029933

PATIENT
  Age: 49 Year
  Sex: Female

DRUGS (2)
  1. NICODERM CQ [Suspect]
     Active Substance: NICOTINE
     Indication: SMOKING CESSATION THERAPY
     Dosage: 14 MG, UNK
     Dates: start: 20180220
  2. NICODERM CQ [Suspect]
     Active Substance: NICOTINE
     Indication: SMOKING CESSATION THERAPY
     Dosage: 21 MG, UNK
     Dates: start: 20180206, end: 20180218

REACTIONS (6)
  - Abnormal behaviour [Not Recovered/Not Resolved]
  - Nausea [Unknown]
  - Application site erythema [Unknown]
  - Application site rash [Not Recovered/Not Resolved]
  - Abdominal discomfort [Unknown]
  - Application site reaction [Unknown]

NARRATIVE: CASE EVENT DATE: 20180206
